FAERS Safety Report 11861456 (Version 2)
Quarter: 2015Q4

REPORT INFORMATION
  Report Type: Spontaneous
  Country: US (occurrence: US)
  Receive Date: 20151222
  Receipt Date: 20151229
  Transmission Date: 20160305
  Serious: Yes (Hospitalization)
  Sender: FDA-Public Use
  Company Number: PHHY2015US165454

PATIENT
  Age: 61 Year
  Sex: Male

DRUGS (3)
  1. ATENOLOL. [Suspect]
     Active Substance: ATENOLOL
     Indication: HYPERTENSION
     Dosage: 500 MG, UNK
     Route: 065
  2. AMLODIPINE [Suspect]
     Active Substance: AMLODIPINE BESYLATE
     Indication: HYPERTENSION
     Dosage: 200 MG, UNK
     Route: 065
  3. VALSARTAN. [Suspect]
     Active Substance: VALSARTAN
     Indication: HYPERTENSION
     Dosage: 375 MG, UNK
     Route: 065

REACTIONS (9)
  - Lactic acidosis [Recovered/Resolved]
  - Pulmonary oedema [Recovered/Resolved]
  - Shock [Recovered/Resolved]
  - Mental status changes [Unknown]
  - Lethargy [Unknown]
  - Toxicity to various agents [Unknown]
  - Cardiotoxicity [Recovered/Resolved]
  - Renal failure [Unknown]
  - Intentional overdose [Unknown]
